FAERS Safety Report 8815635 (Version 2)
Quarter: 2013Q1

REPORT INFORMATION
  Report Type: Spontaneous
  Country: JP (occurrence: JP)
  Receive Date: 20120928
  Receipt Date: 20130204
  Transmission Date: 20140127
  Serious: Yes (Life-Threatening)
  Sender: FDA-Public Use
  Company Number: JP-CELGENEUS-087-21880-12090212

PATIENT
  Age: 61 Year
  Sex: Female

DRUGS (11)
  1. REVLIMID [Suspect]
     Indication: PLASMA CELL MYELOMA
     Dosage: 25 MILLIGRAM
     Route: 048
     Dates: start: 20110915, end: 20111004
  2. LENADEX [Suspect]
     Indication: PLASMA CELL MYELOMA
     Dosage: 40 MILLIGRAM
     Route: 048
     Dates: start: 20110915, end: 20110918
  3. LENADEX [Suspect]
     Dosage: 40 MILLIGRAM
     Route: 048
     Dates: start: 20110923, end: 20110926
  4. LENADEX [Suspect]
     Dosage: 40 MILLIGRAM
     Route: 048
     Dates: start: 20111001, end: 20111004
  5. MICARDIS [Concomitant]
     Indication: HYPERTENSION
     Dosage: 40 MILLIGRAM
     Route: 048
  6. PURSENNID [Concomitant]
     Indication: PROPHYLAXIS
     Dosage: 12 MILLIGRAM
     Route: 048
  7. ACINON [Concomitant]
     Indication: PROPHYLAXIS
     Dosage: 150 MILLIGRAM
     Route: 048
  8. NORVASC [Concomitant]
     Indication: HYPERTENSION
     Dosage: 5 MILLIGRAM
     Route: 048
  9. LIPOVAS [Concomitant]
     Indication: HYPERLIPIDAEMIA
     Dosage: 25 MILLIGRAM
     Route: 048
  10. CELECOX [Concomitant]
     Indication: PROPHYLAXIS
     Dosage: 200 MILLIGRAM
     Route: 048
  11. MAGMITT [Concomitant]
     Indication: PROPHYLAXIS
     Dosage: 990 MILLIGRAM
     Route: 048

REACTIONS (1)
  - Interstitial lung disease [Recovered/Resolved]
